FAERS Safety Report 10733416 (Version 2)
Quarter: 2015Q1

REPORT INFORMATION
  Report Type: Report from Study
  Country: AR (occurrence: AR)
  Receive Date: 20150123
  Receipt Date: 20150205
  Transmission Date: 20150721
  Serious: Yes (Hospitalization)
  Sender: FDA-Public Use
  Company Number: PHHY2015AR008858

PATIENT
  Age: 70 Year
  Sex: Female

DRUGS (1)
  1. EXFORGE [Suspect]
     Active Substance: AMLODIPINE BESYLATE\VALSARTAN
     Indication: HYPERTENSION
     Dosage: 1 DF (160/5 UNITS NOT REPORTED), QD
     Route: 048
     Dates: end: 201411

REACTIONS (5)
  - Prothrombin level abnormal [Not Recovered/Not Resolved]
  - Pain in extremity [Not Recovered/Not Resolved]
  - Renal disorder [Not Recovered/Not Resolved]
  - Renal failure [Not Recovered/Not Resolved]
  - Blood potassium abnormal [Not Recovered/Not Resolved]

NARRATIVE: CASE EVENT DATE: 201411
